FAERS Safety Report 5006759-7 (Version None)
Quarter: 2006Q2

REPORT INFORMATION
  Report Type: 
  Country: None (occurrence: None)
  Receive Date: 20060519
  Receipt Date: 20060511
  Transmission Date: 20061013
  Serious: Yes (Hospitalization, Other)
  Sender: FDA-Public Use
  Company Number: CA-JNJFOC-20060502646

PATIENT
  Sex: Male

DRUGS (3)
  1. REMICADE [Suspect]
     Route: 042
  2. REMICADE [Suspect]
     Dosage: PATIENT RECEIVED 2 INFUSIONS ON UNKNOWN DATES.
     Route: 042
  3. REMICADE [Suspect]
     Indication: ANKYLOSING SPONDYLITIS
     Route: 042

REACTIONS (12)
  - GENITAL PRURITUS MALE [None]
  - GROIN PAIN [None]
  - HAEMATOCHEZIA [None]
  - INFLUENZA LIKE ILLNESS [None]
  - INFUSION RELATED REACTION [None]
  - NAUSEA [None]
  - NECROTISING FASCIITIS [None]
  - PAIN [None]
  - PYREXIA [None]
  - SCROTAL ABSCESS [None]
  - SCROTAL PAIN [None]
  - VOMITING [None]
